FAERS Safety Report 9553618 (Version 2)
Quarter: 2013Q4

REPORT INFORMATION
  Report Type: Spontaneous
  Country: ES (occurrence: None)
  Receive Date: 20130923
  Receipt Date: 20131016
  Transmission Date: 20140711
  Serious: Yes (Death, Other)
  Sender: FDA-Public Use
  Company Number: 2013P1019303

PATIENT
  Age: 48 Year
  Sex: Male

DRUGS (4)
  1. FENTANYL [Suspect]
     Indication: BREAKTHROUGH PAIN
     Route: 062
     Dates: end: 200906
  2. OXYCODONE [Suspect]
     Indication: NEOPLASM MALIGNANT
     Route: 048
     Dates: start: 200906
  3. ALPRAZOLAM [Concomitant]
  4. DEXKETOPROFEN TROMETAMOL [Suspect]

REACTIONS (4)
  - Abnormal behaviour [None]
  - Drug dependence [None]
  - Self-medication [None]
  - Intentional drug misuse [None]
